APPROVED DRUG PRODUCT: NICLOCIDE
Active Ingredient: NICLOSAMIDE
Strength: 500MG
Dosage Form/Route: TABLET, CHEWABLE;ORAL
Application: N018669 | Product #001
Applicant: BAYER PHARMACEUTICALS CORP
Approved: May 14, 1982 | RLD: No | RS: No | Type: DISCN